FAERS Safety Report 19116131 (Version 4)
Quarter: 2021Q2

REPORT INFORMATION
  Report Type: Spontaneous
  Country: PL (occurrence: PL)
  Receive Date: 20210409
  Receipt Date: 20210519
  Transmission Date: 20210717
  Serious: Yes (Hospitalization, Other)
  Sender: FDA-Public Use
  Company Number: PL-TEVA-2021-PL-1898754

PATIENT
  Age: 38 Year
  Sex: Female

DRUGS (6)
  1. ZOLMILES [Concomitant]
     Active Substance: ZOLMITRIPTAN
     Indication: MIGRAINE
     Dosage: DOSAGE 4?5 PER WEEK
     Route: 048
     Dates: start: 202009
  2. MIRZATEN [Concomitant]
     Active Substance: MIRTAZAPINE
     Indication: DEPRESSION
     Route: 048
     Dates: start: 202009
  3. NASEN [Concomitant]
     Indication: SLEEP DISORDER
     Route: 048
     Dates: start: 202011
  4. AJOVY [Suspect]
     Active Substance: FREMANEZUMAB-VFRM
     Indication: MIGRAINE
     Dosage: RECEIVED 5 DOSES OF AJOVY
     Route: 058
     Dates: start: 202011
  5. SETALOFT [Concomitant]
     Active Substance: SERTRALINE HYDROCHLORIDE
     Indication: DEPRESSION
     Route: 048
     Dates: start: 202009
  6. PRAMOLAN [Concomitant]
     Active Substance: OPIPRAMOL HYDROCHLORIDE
     Indication: DEPRESSION
     Route: 048
     Dates: start: 202011

REACTIONS (6)
  - Blood uric acid abnormal [Not Recovered/Not Resolved]
  - Connective tissue disorder [Unknown]
  - Peripheral swelling [Not Recovered/Not Resolved]
  - Paraesthesia [Not Recovered/Not Resolved]
  - Monoparesis [Not Recovered/Not Resolved]
  - Pain [Not Recovered/Not Resolved]

NARRATIVE: CASE EVENT DATE: 20210105
